FAERS Safety Report 11389167 (Version 1)
Quarter: 2015Q3

REPORT INFORMATION
  Report Type: Spontaneous
  Country: US (occurrence: US)
  Receive Date: 20150817
  Receipt Date: 20150817
  Transmission Date: 20151125
  Serious: Yes (Death, Life-Threatening, Other)
  Sender: FDA-Public Use
  Company Number: US-BRISTOL-MYERS SQUIBB COMPANY-BMS-2015-053023

PATIENT
  Sex: Male

DRUGS (1)
  1. ELIQUIS [Suspect]
     Active Substance: APIXABAN
     Indication: CEREBROVASCULAR ACCIDENT PROPHYLAXIS
     Dosage: UNK
     Route: 048
     Dates: end: 20130813

REACTIONS (5)
  - Coronary artery disease [Unknown]
  - Coagulopathy [Fatal]
  - Cardio-respiratory arrest [Unknown]
  - Vascular graft [Unknown]
  - Haemorrhage [Fatal]

NARRATIVE: CASE EVENT DATE: 201308
